FAERS Safety Report 19902315 (Version 5)
Quarter: 2021Q4

REPORT INFORMATION
  Report Type: Spontaneous
  Country: US (occurrence: US)
  Receive Date: 20210930
  Receipt Date: 20211213
  Transmission Date: 20220303
  Serious: Yes (Other)
  Sender: FDA-Public Use
  Company Number: US-SANOFI-00779178

PATIENT
  Age: 54 Year
  Sex: Male

DRUGS (1)
  1. APIDRA [Suspect]
     Active Substance: INSULIN GLULISINE
     Indication: Type 1 diabetes mellitus
     Dosage: 42 IU, QD
     Route: 065
     Dates: start: 2004

REACTIONS (4)
  - Diabetes mellitus inadequate control [Recovering/Resolving]
  - Product use issue [Recovering/Resolving]
  - Drug effective for unapproved indication [Unknown]
  - Product prescribing issue [Unknown]
